FAERS Safety Report 16785372 (Version 2)
Quarter: 2020Q1

REPORT INFORMATION
  Report Type: Report from Study
  Country: AU (occurrence: AU)
  Receive Date: 20190909
  Receipt Date: 20200304
  Transmission Date: 20200409
  Serious: Yes (Other)
  Sender: FDA-Public Use
  Company Number: PHHY2019AU208485

PATIENT
  Age: 8 Year
  Sex: Male
  Weight: 30.8 kg

DRUGS (2)
  1. TRAMETINIB [Suspect]
     Active Substance: TRAMETINIB
     Indication: NEUROFIBROMA
     Dosage: 1 MG, QD
     Route: 048
     Dates: start: 20190226, end: 20190819
  2. TRAMETINIB [Suspect]
     Active Substance: TRAMETINIB
     Dosage: UNK
     Route: 048

REACTIONS (6)
  - Discharge [Unknown]
  - Rash erythematous [Recovering/Resolving]
  - Skin exfoliation [Recovering/Resolving]
  - Paronychia [Unknown]
  - Erythema [Unknown]
  - Cellulitis [Recovering/Resolving]

NARRATIVE: CASE EVENT DATE: 20190820
